FAERS Safety Report 13078394 (Version 5)
Quarter: 2017Q1

REPORT INFORMATION
  Report Type: Report from Study
  Country: US (occurrence: US)
  Receive Date: 20170102
  Receipt Date: 20170228
  Transmission Date: 20170428
  Serious: Yes (Hospitalization, Other)
  Sender: FDA-Public Use
  Company Number: US-GILEAD-2016-0251138

PATIENT
  Age: 72 Year
  Sex: Female

DRUGS (26)
  1. AYR SALINE [Concomitant]
  2. COLACE [Concomitant]
     Active Substance: DOCUSATE SODIUM
  3. TYVASO [Concomitant]
     Active Substance: TREPROSTINIL
  4. XARELTO [Concomitant]
     Active Substance: RIVAROXABAN
  5. AMBRISENTAN [Suspect]
     Active Substance: AMBRISENTAN
     Indication: DIASTOLIC DYSFUNCTION
  6. MUCINEX [Concomitant]
     Active Substance: GUAIFENESIN
  7. CRESTOR [Concomitant]
     Active Substance: ROSUVASTATIN CALCIUM
  8. FLUTICASONE. [Concomitant]
     Active Substance: FLUTICASONE
  9. FUROSEMIDE. [Concomitant]
     Active Substance: FUROSEMIDE
  10. HCTZ [Concomitant]
     Active Substance: HYDROCHLOROTHIAZIDE
  11. METFORMIN [Concomitant]
     Active Substance: METFORMIN HYDROCHLORIDE
  12. AMBRISENTAN [Suspect]
     Active Substance: AMBRISENTAN
     Indication: PULMONARY ARTERIAL HYPERTENSION
     Dosage: 10 MG, UNK
     Route: 065
     Dates: start: 20140909
  13. BREO ELLIPTA [Concomitant]
     Active Substance: FLUTICASONE FUROATE\VILANTEROL TRIFENATATE
  14. CYANOCOBALAMIN. [Concomitant]
     Active Substance: CYANOCOBALAMIN
  15. DILTIAZEM. [Concomitant]
     Active Substance: DILTIAZEM
  16. FAMOTIDINE. [Concomitant]
     Active Substance: FAMOTIDINE
  17. LANTUS [Concomitant]
     Active Substance: INSULIN GLARGINE
  18. NOVOLOG [Concomitant]
     Active Substance: INSULIN ASPART
  19. TRIAMCINOLONE [Concomitant]
     Active Substance: TRIAMCINOLONE
  20. INSULIN [Concomitant]
     Active Substance: INSULIN NOS
  21. KLOR-CON [Concomitant]
     Active Substance: POTASSIUM CHLORIDE
  22. SILDENAFIL. [Concomitant]
     Active Substance: SILDENAFIL
  23. CETIRIZINE [Concomitant]
     Active Substance: CETIRIZINE HYDROCHLORIDE
  24. TORSEMIDE. [Concomitant]
     Active Substance: TORSEMIDE
  25. ALLOPURINOL. [Concomitant]
     Active Substance: ALLOPURINOL
  26. VITAMIN D3 [Concomitant]
     Active Substance: CHOLECALCIFEROL

REACTIONS (4)
  - Asthenia [Recovered/Resolved]
  - Lower limb fracture [Not Recovered/Not Resolved]
  - Drug dose omission [Recovered/Resolved]
  - Loss of consciousness [Unknown]

NARRATIVE: CASE EVENT DATE: 20161213
